FAERS Safety Report 10343776 (Version 1)
Quarter: 2014Q3

REPORT INFORMATION
  Report Type: Report from Study
  Country: US (occurrence: US)
  Receive Date: 20140725
  Receipt Date: 20140725
  Transmission Date: 20150326
  Serious: Yes (Other)
  Sender: FDA-Public Use
  Company Number: US-ACTELION-A-NJ2014-102395

PATIENT
  Age: 56 Year
  Sex: Male

DRUGS (2)
  1. VELETRI [Suspect]
     Active Substance: EPOPROSTENOL
     Indication: COR PULMONALE CHRONIC
     Dosage: 22 NG/KG, PER MIN
     Route: 042
     Dates: start: 20140619
  2. VIAGRA [Concomitant]
     Active Substance: SILDENAFIL CITRATE

REACTIONS (1)
  - Neck mass [Unknown]
